FAERS Safety Report 9027894 (Version 7)
Quarter: 2024Q2

REPORT INFORMATION
  Report Type: Report from Study
  Country: DE (occurrence: DE)
  Receive Date: 20130124
  Receipt Date: 20240625
  Transmission Date: 20240715
  Serious: Yes (Hospitalization, Other)
  Sender: FDA-Public Use
  Company Number: DE-JNJFOC-20130111067

PATIENT
  Age: 14 Year
  Sex: Female
  Weight: 37.8 kg

DRUGS (5)
  1. REMICADE [Suspect]
     Active Substance: INFLIXIMAB
     Indication: Crohn^s disease
     Route: 041
     Dates: start: 20090702, end: 20110902
  2. REMICADE [Suspect]
     Active Substance: INFLIXIMAB
     Route: 041
     Dates: start: 20090702, end: 20100318
  3. REMICADE [Suspect]
     Active Substance: INFLIXIMAB
     Route: 041
     Dates: start: 20100415, end: 20100517
  4. REMICADE [Suspect]
     Active Substance: INFLIXIMAB
     Route: 041
     Dates: start: 20100617, end: 20110825
  5. MESALAMINE [Concomitant]
     Active Substance: MESALAMINE
     Route: 054

REACTIONS (14)
  - Influenza [Recovered/Resolved]
  - Haematochezia [Recovered/Resolved]
  - Anal fissure [Recovered/Resolved]
  - Constipation [Recovered/Resolved]
  - Cough [Recovered/Resolved]
  - Pyrexia [Recovered/Resolved]
  - Headache [Recovered/Resolved]
  - Hyponatraemia [Recovered/Resolved]
  - Iron deficiency [Recovered/Resolved]
  - Oedema genital [Recovered/Resolved]
  - Weight decreased [Recovered/Resolved]
  - Malnutrition [Recovered/Resolved]
  - Chronic obstructive pulmonary disease [Not Recovered/Not Resolved]
  - Rash [Recovered/Resolved]

NARRATIVE: CASE EVENT DATE: 20121031
